FAERS Safety Report 8827762 (Version 2)
Quarter: 2012Q4

REPORT INFORMATION
  Report Type: Report from Study
  Country: JP (occurrence: JP)
  Receive Date: 20121005
  Receipt Date: 20121228
  Transmission Date: 20130627
  Serious: Yes (Hospitalization)
  Sender: FDA-Public Use
  Company Number: JP-JNJFOC-20121000106

PATIENT
  Age: 36 Year
  Sex: Female

DRUGS (5)
  1. TOPINA [Suspect]
     Indication: EPILEPSY
     Route: 048
     Dates: start: 20090630
  2. DEPAKENE-R [Suspect]
     Indication: EPILEPSY
     Route: 048
  3. TEGRETOL [Suspect]
     Indication: EPILEPSY
     Route: 048
  4. BENZALIN [Concomitant]
     Route: 048
  5. MYSTAN [Concomitant]
     Route: 048

REACTIONS (2)
  - Brain contusion [Not Recovered/Not Resolved]
  - Ankle fracture [Not Recovered/Not Resolved]
